FAERS Safety Report 8461483-3 (Version None)
Quarter: 2012Q2

REPORT INFORMATION
  Report Type: 
  Country: None (occurrence: None)
  Receive Date: 20120625
  Receipt Date: 20120613
  Transmission Date: 20120825
  Serious: Yes (Life-Threatening, Hospitalization)
  Sender: FDA-Public Use
  Company Number: JP-SANOFI-AVENTIS-2012SA006360

PATIENT
  Age: 68 Year
  Sex: Male
  Weight: 71 kg

DRUGS (9)
  1. TICLOPIDINE HCL [Suspect]
     Dosage: ROUTE- INTERNAL USE
     Route: 048
     Dates: start: 20111227, end: 20120110
  2. CONIEL [Concomitant]
  3. ASPIRIN [Suspect]
     Dosage: ROUTE- INTERNAL USE
  4. ALLOPURINOL [Concomitant]
  5. METFORMIN HYDROCHLORIDE [Concomitant]
  6. ROSUVASTATIN [Concomitant]
  7. PLAVIX [Suspect]
     Route: 048
     Dates: start: 20120110, end: 20120117
  8. AMARYL [Concomitant]
  9. ASPIRIN [Concomitant]

REACTIONS (5)
  - CHOLESTASIS [None]
  - MALAISE [None]
  - HAEMATURIA [None]
  - JAUNDICE [None]
  - HEPATIC FUNCTION ABNORMAL [None]
